FAERS Safety Report 6955300-8 (Version None)
Quarter: 2010Q3

REPORT INFORMATION
  Report Type: 
  Country: None (occurrence: None)
  Receive Date: 20100830
  Receipt Date: 20100818
  Transmission Date: 20110219
  Serious: Yes (Other)
  Sender: FDA-Public Use
  Company Number: PHHY2010CA41575

PATIENT
  Sex: Female

DRUGS (5)
  1. EXJADE [Suspect]
     Indication: MYELOFIBROSIS
     Dosage: 1500 MG, QD
     Route: 048
  2. DIOVAN [Concomitant]
     Indication: BLOOD PRESSURE
  3. SYNTHROID [Concomitant]
     Indication: THYROID DISORDER
  4. ASCORBIC ACID [Concomitant]
     Dosage: 1000 MG, OD
     Route: 048
  5. CYKLOKAPRON [Concomitant]
     Indication: ANAL HAEMORRHAGE

REACTIONS (6)
  - BONE MARROW DISORDER [None]
  - CONSTIPATION [None]
  - HEADACHE [None]
  - INFECTION [None]
  - PYREXIA [None]
  - VOMITING [None]
